FAERS Safety Report 23207618 (Version 2)
Quarter: 2023Q4

REPORT INFORMATION
  Report Type: Report from Study
  Country: AU (occurrence: AU)
  Receive Date: 20231120
  Receipt Date: 20231201
  Transmission Date: 20240109
  Serious: Yes (Hospitalization, Other)
  Sender: FDA-Public Use
  Company Number: AU-ALXN-A202309510

PATIENT
  Age: 47 Year
  Sex: Female
  Weight: 54 kg

DRUGS (33)
  1. SOLIRIS [Suspect]
     Active Substance: ECULIZUMAB
     Indication: Atypical haemolytic uraemic syndrome
     Dosage: 900 MILLIGRAM
     Route: 042
     Dates: start: 20111104, end: 20111125
  2. SOLIRIS [Suspect]
     Active Substance: ECULIZUMAB
     Dosage: 1200 MILLIGRAM
     Route: 042
     Dates: start: 20111202
  3. WARFARIN [Concomitant]
     Active Substance: WARFARIN
     Indication: Anticoagulant therapy
     Dosage: UNK MG, QOD
     Route: 048
     Dates: start: 20111204
  4. WARFARIN [Concomitant]
     Active Substance: WARFARIN
     Dosage: 250 MILLIGRAM, BID
     Route: 048
     Dates: start: 20161104
  5. AMOXICILLIN [Concomitant]
     Active Substance: AMOXICILLIN
     Indication: Splenectomy
     Dosage: 250 MILLIGRAM, BID
     Route: 048
     Dates: start: 20161104
  6. CHOLECALCIFEROL [Concomitant]
     Active Substance: CHOLECALCIFEROL
     Indication: Vitamin supplementation
     Dosage: 25 MICROGRAM, QOD
     Route: 048
     Dates: start: 20180826
  7. PREDNISOLONE [Concomitant]
     Active Substance: PREDNISOLONE
     Indication: Immunosuppressant drug therapy
     Dosage: UNK MG,  QOD
     Route: 048
     Dates: start: 20180827
  8. SULFAMETHOXAZOLE\TRIMETHOPRIM [Concomitant]
     Active Substance: SULFAMETHOXAZOLE\TRIMETHOPRIM
     Indication: Antibiotic prophylaxis
     Dosage: 80/400 MG, QOD
     Route: 048
     Dates: start: 20180826, end: 20230804
  9. MAGNESIUM ASPARTATE [Concomitant]
     Active Substance: MAGNESIUM ASPARTATE
     Indication: Mineral supplementation
     Dosage: 1000 MILLIGRAM, TID
     Route: 048
     Dates: start: 20211210
  10. SODIBIC [Concomitant]
     Indication: Urine alkalinisation therapy
     Dosage: 1680 MILLIGRAM, BID
     Route: 048
     Dates: start: 20211214
  11. CYCLOSPORINE [Concomitant]
     Active Substance: CYCLOSPORINE
     Indication: Immunosuppressant drug therapy
     Dosage: UNK MG,  BID
     Route: 048
     Dates: start: 20220830
  12. VALACYCLOVIR HYDROCHLORIDE [Concomitant]
     Active Substance: VALACYCLOVIR HYDROCHLORIDE
     Indication: Prophylaxis
     Dosage: 500 MILLIGRAM, QOD
     Route: 048
     Dates: start: 20220915
  13. VALACYCLOVIR HYDROCHLORIDE [Concomitant]
     Active Substance: VALACYCLOVIR HYDROCHLORIDE
     Dosage: 500 MILLIGRAM
     Route: 048
     Dates: start: 20230719
  14. MYCOPHENOLATE MOFETIL [Concomitant]
     Active Substance: MYCOPHENOLATE MOFETIL
     Indication: Immunosuppressant drug therapy
     Dosage: 500 MILLIGRAM, BID
     Route: 048
     Dates: start: 20220921
  15. PANTOPRAZOLE [Concomitant]
     Active Substance: PANTOPRAZOLE
     Indication: Gastrooesophageal reflux disease
     Dosage: 40 MILLIGRAM, BID
     Route: 048
     Dates: start: 201610
  16. FLECAINIDE [Concomitant]
     Active Substance: FLECAINIDE
     Indication: Supraventricular tachycardia
     Dosage: 100 MILLIGRAM, SINGLE
     Route: 048
     Dates: start: 20230622, end: 20230622
  17. FLECAINIDE [Concomitant]
     Active Substance: FLECAINIDE
     Dosage: 50 MILLIGRAM, BID
     Route: 048
     Dates: start: 20230623
  18. PANTOPRAZOLE SODIUM [Concomitant]
     Active Substance: PANTOPRAZOLE SODIUM
     Indication: Gastrooesophageal reflux disease
     Dosage: 40 MILLIGRAM, BID
     Route: 042
     Dates: start: 20230623, end: 20230627
  19. PANTOPRAZOLE SODIUM [Concomitant]
     Active Substance: PANTOPRAZOLE SODIUM
     Dosage: 40 MILLIGRAM, BID
     Route: 048
     Dates: start: 201610
  20. SERTRALINE [Concomitant]
     Active Substance: SERTRALINE HYDROCHLORIDE
     Indication: Depression
     Dosage: 25 MILLIGRAM, QD
     Route: 048
     Dates: start: 2022
  21. SPIRONOLACTONE [Concomitant]
     Active Substance: SPIRONOLACTONE
     Indication: Fluid retention
     Dosage: 25 MILLIGRAM, QD
     Route: 048
     Dates: start: 20230623, end: 20230627
  22. SPIRONOLACTONE [Concomitant]
     Active Substance: SPIRONOLACTONE
     Dosage: 12.5 MILLIGRAM, QD
     Route: 048
     Dates: start: 20230720, end: 20230731
  23. FUROSEMIDE [Concomitant]
     Active Substance: FUROSEMIDE
     Indication: Fluid retention
     Dosage: 40 UNK, BID
     Route: 048
  24. FUROSEMIDE [Concomitant]
     Active Substance: FUROSEMIDE
     Dosage: UNK UNK, BID
     Route: 042
     Dates: start: 20230721, end: 20230725
  25. FUROSEMIDE [Concomitant]
     Active Substance: FUROSEMIDE
     Dosage: 250 MILLIGRAM, BID
     Route: 048
     Dates: start: 20230727, end: 20230731
  26. FUROSEMIDE [Concomitant]
     Active Substance: FUROSEMIDE
     Dosage: UNK
     Route: 048
     Dates: start: 2018
  27. SEVELAMER [Concomitant]
     Active Substance: SEVELAMER
     Indication: Blood phosphorus abnormal
     Dosage: 800 MILLIGRAM, BID
     Route: 048
     Dates: start: 20230807, end: 20230816
  28. MENVEO [Concomitant]
     Active Substance: NEISSERIA MENINGITIDIS GROUP A CAPSULAR OLIGOSACCHARIDE DIPHTHERIA CRM197 PROTEIN CONJUGATE ANTIGEN\
     Indication: Meningococcal immunisation
     Dosage: 0.5 MILLILITER, SINGLE
     Route: 030
     Dates: start: 20111104
  29. MENVEO [Concomitant]
     Active Substance: NEISSERIA MENINGITIDIS GROUP A CAPSULAR OLIGOSACCHARIDE DIPHTHERIA CRM197 PROTEIN CONJUGATE ANTIGEN\
     Dosage: 0.5 MILLILITER, SINGLE
     Route: 030
     Dates: start: 20130514
  30. BEXSERO [Concomitant]
     Active Substance: NEISSERIA MENINGITIDIS GROUP B FHBP FUSION PROTEIN ANTIGEN\NEISSERIA MENINGITIDIS GROUP B NADA PROTE
     Indication: Meningococcal immunisation
     Dosage: 0.5 MILLILITER, SINGLE
     Route: 030
     Dates: start: 20140604
  31. BEXSERO [Concomitant]
     Active Substance: NEISSERIA MENINGITIDIS GROUP B FHBP FUSION PROTEIN ANTIGEN\NEISSERIA MENINGITIDIS GROUP B NADA PROTE
     Dosage: 0.5 MILLILITER, SINGLE
     Route: 030
     Dates: start: 20140707
  32. MENACTRA [Concomitant]
     Active Substance: NEISSERIA MENINGITIDIS GROUP A CAPSULAR POLYSACCHARIDE DIPHTHERIA TOXOID CONJUGATE ANTIGEN\NEISSERIA
     Indication: Meningococcal immunisation
     Dosage: 0.5 MILLIGRAM, SINGLE
     Route: 030
     Dates: start: 20171114
  33. NIMENRIX [Concomitant]
     Active Substance: CLOSTRIDIUM TETANI TOXOID ANTIGEN (FORMALDEHYDE INACTIVATED)\MENINGOCOCCAL POLYSACCHARIDE VACCINE, G
     Indication: Meningococcal immunisation
     Dosage: UNK MILLIGRAM, SINGLE
     Route: 030
     Dates: start: 20230601

REACTIONS (2)
  - Hypervolaemia [Recovered/Resolved]
  - Renal impairment [Recovered/Resolved]

NARRATIVE: CASE EVENT DATE: 20230719
